FAERS Safety Report 5675232-5 (Version None)
Quarter: 2008Q2

REPORT INFORMATION
  Report Type: 
  Country: None (occurrence: None)
  Receive Date: 20080307
  Receipt Date: 20070824
  Transmission Date: 20081010
  Serious: Yes (Hospitalization)
  Sender: FDA-Public Use
  Company Number: T200700488

PATIENT
  Age: 77 Year
  Sex: Female

DRUGS (6)
  1. OPTIRAY 350 [Suspect]
     Indication: COMPUTERISED TOMOGRAM
     Dosage: 70 ML, SINGLE, INTRAVENOUS
     Route: 042
     Dates: start: 20070427, end: 20070427
  2. DIGOXIN [Concomitant]
  3. LEVOXYL (LEVOTHYROXINE SODIUM0 [Concomitant]
  4. VYTORIN [Concomitant]
  5. COUMADIN [Concomitant]
  6. MACROBID [Concomitant]

REACTIONS (7)
  - CIRCUMORAL OEDEMA [None]
  - GENERALISED ERYTHEMA [None]
  - LARYNGEAL OEDEMA [None]
  - NAUSEA [None]
  - OEDEMA MOUTH [None]
  - PARAESTHESIA ORAL [None]
  - URTICARIA [None]
